FAERS Safety Report 5716124-2 (Version None)
Quarter: 2008Q2

REPORT INFORMATION
  Report Type: 
  Country: None (occurrence: None)
  Receive Date: 20080423
  Receipt Date: 20080423
  Transmission Date: 20081010
  Serious: Yes (Other)
  Sender: FDA-Public Use
  Company Number: None

PATIENT
  Age: 54 Year
  Sex: Male
  Weight: 74.8435 kg

DRUGS (1)
  1. LEVAQUIN [Suspect]
     Indication: EPIDIDYMITIS
     Dosage: 500 MG TABLET ONCE DAILY PO
     Route: 048
     Dates: start: 20071103, end: 20071106

REACTIONS (7)
  - ARTHROPATHY [None]
  - BURNING SENSATION [None]
  - FEELING OF BODY TEMPERATURE CHANGE [None]
  - JOINT SWELLING [None]
  - OSTEOPOROSIS [None]
  - PAIN IN EXTREMITY [None]
  - TENDON PAIN [None]
